FAERS Safety Report 8123307-3 (Version None)
Quarter: 2012Q1

REPORT INFORMATION
  Report Type: 
  Country: None (occurrence: None)
  Receive Date: 20120208
  Receipt Date: 20120130
  Transmission Date: 20120608
  Serious: Yes (Hospitalization)
  Sender: FDA-Public Use
  Company Number: US-ROCHE-1037419

PATIENT
  Sex: Female

DRUGS (6)
  1. CORTISONE ACETATE [Concomitant]
  2. ANTIBIOTICS (NOT SPECIFIED) [Concomitant]
  3. VENTOLIN [Concomitant]
  4. OMALIZUMAB [Suspect]
     Indication: ASTHMA
     Route: 058
     Dates: start: 20101110
  5. CORTISONE ACETATE [Concomitant]
  6. SPIRIVA [Concomitant]

REACTIONS (9)
  - FATIGUE [None]
  - GENERAL PHYSICAL HEALTH DETERIORATION [None]
  - ASTHMATIC CRISIS [None]
  - HEADACHE [None]
  - BRONCHITIS [None]
  - BLOOD IMMUNOGLOBULIN E DECREASED [None]
  - BLOOD PRESSURE INCREASED [None]
  - HEART RATE INCREASED [None]
  - DEPRESSED LEVEL OF CONSCIOUSNESS [None]
